FAERS Safety Report 8605867-9 (Version None)
Quarter: 2012Q3

REPORT INFORMATION
  Report Type: 
  Country: None (occurrence: None)
  Receive Date: 20120820
  Receipt Date: 20120810
  Transmission Date: 20120928
  Serious: Yes (Congenital Anomaly)
  Sender: FDA-Public Use
  Company Number: US-GLAXOSMITHKLINE-A0990072A

PATIENT
  Sex: Male

DRUGS (4)
  1. DEPAKOTE [Concomitant]
     Indication: BIPOLAR DISORDER
     Route: 064
     Dates: start: 20011101
  2. CLONAZEPAM [Concomitant]
     Route: 064
     Dates: start: 20011101
  3. PAXIL [Suspect]
     Indication: ANXIETY
     Dosage: 40MG PER DAY
     Route: 064
     Dates: start: 20011101
  4. ZYPREXA [Concomitant]
     Indication: BIPOLAR DISORDER
     Route: 064
     Dates: start: 20011101

REACTIONS (2)
  - FOETAL EXPOSURE DURING PREGNANCY [None]
  - CLEFT LIP AND PALATE [None]
